FAERS Safety Report 9965725 (Version 1)
Quarter: 2014Q1

REPORT INFORMATION
  Report Type: Report from Study
  Country: US (occurrence: US)
  Receive Date: 20140305
  Receipt Date: 20140305
  Transmission Date: 20141002
  Serious: No
  Sender: FDA-Public Use
  Company Number: US-ABBVIE-13P-163-1123357-00

PATIENT
  Age: 39 Year
  Sex: Female

DRUGS (17)
  1. HUMIRA [Suspect]
     Indication: CROHN^S DISEASE
     Dates: start: 20130509
  2. NEXIUM [Concomitant]
     Indication: DYSPEPSIA
  3. CLARINEX [Concomitant]
     Indication: HYPERSENSITIVITY
  4. XIFAXAN [Concomitant]
     Indication: ANTIBIOTIC PROPHYLAXIS
  5. FENOFIBRATE [Concomitant]
     Indication: BLOOD CHOLESTEROL
  6. GLUMEXA [Concomitant]
     Indication: INSULIN RESISTANCE
  7. GLUMEXA [Concomitant]
     Indication: POLYCYSTIC OVARIES
  8. ROPINIROLE [Concomitant]
     Indication: RESTLESS LEGS SYNDROME
  9. ADDERALL [Concomitant]
     Indication: ATTENTION DEFICIT/HYPERACTIVITY DISORDER
  10. LUNESTA [Concomitant]
     Indication: INSOMNIA
     Dosage: AT NIGHT
  11. ABILIFY [Concomitant]
     Indication: BIPOLAR DISORDER
  12. TEGRETOL [Concomitant]
     Indication: BIPOLAR DISORDER
  13. VITAMIN B12 [Concomitant]
     Indication: PRODUCT USED FOR UNKNOWN INDICATION
  14. WOMEN^S HEALTH MULTIVITAMIN [Concomitant]
     Indication: PRODUCT USED FOR UNKNOWN INDICATION
     Dosage: EVERY DAY
  15. VITAMIN D [Concomitant]
     Indication: PRODUCT USED FOR UNKNOWN INDICATION
  16. CALCIUM [Concomitant]
     Indication: MINERAL SUPPLEMENTATION
     Dosage: EVERY DAY
  17. IRON [Concomitant]
     Indication: PRODUCT USED FOR UNKNOWN INDICATION
     Dosage: EVERY DAY

REACTIONS (3)
  - Gastroenteritis viral [Not Recovered/Not Resolved]
  - Injection site vesicles [Not Recovered/Not Resolved]
  - Injection site bruising [Not Recovered/Not Resolved]
